FAERS Safety Report 21720242 (Version 3)
Quarter: 2023Q1

REPORT INFORMATION
  Report Type: Report from Study
  Country: US (occurrence: US)
  Receive Date: 20221213
  Receipt Date: 20230113
  Transmission Date: 20230418
  Serious: No
  Sender: FDA-Public Use
  Company Number: US-SAREPTA THERAPEUTICS INC.-SRP2022-002812

PATIENT

DRUGS (4)
  1. GOLODIRSEN [Suspect]
     Active Substance: GOLODIRSEN
     Indication: Duchenne muscular dystrophy
     Dosage: 550 MILLIGRAM, WEEKLY
     Route: 042
     Dates: start: 20220805, end: 20221209
  2. GOLODIRSEN [Suspect]
     Active Substance: GOLODIRSEN
     Dosage: 550 MILLIGRAM, WEEKLY
     Route: 042
     Dates: start: 20221221
  3. VITAMIN D NOS [Concomitant]
     Active Substance: VITAMIN D NOS
     Indication: Product used for unknown indication
     Dosage: UNK
  4. VITAMINS [Concomitant]
     Active Substance: VITAMINS
     Indication: Product used for unknown indication
     Dosage: UNK

REACTIONS (3)
  - Viral myositis [Recovered/Resolved]
  - Pain in extremity [Recovered/Resolved]
  - Poor venous access [Unknown]

NARRATIVE: CASE EVENT DATE: 20220101
